FAERS Safety Report 6517849-1 (Version None)
Quarter: 2009Q4

REPORT INFORMATION
  Report Type: 
  Country: None (occurrence: None)
  Receive Date: 20091224
  Receipt Date: 20091221
  Transmission Date: 20100525
  Serious: Yes (Death)
  Sender: FDA-Public Use
  Company Number: PHHY2009CN57622

PATIENT
  Age: 57 Year
  Sex: Male

DRUGS (2)
  1. GLEEVEC [Suspect]
     Indication: GASTROINTESTINAL STROMAL TUMOUR
     Dosage: 200 MG, QD
     Route: 048
     Dates: start: 20080602
  2. GLEEVEC [Suspect]
     Dosage: 400 MG/DAY
     Route: 048

REACTIONS (1)
  - MULTI-ORGAN FAILURE [None]
